FAERS Safety Report 20819686 (Version 1)
Quarter: 2022Q2

REPORT INFORMATION
  Report Type: Spontaneous
  Country: SE (occurrence: SE)
  Receive Date: 20220512
  Receipt Date: 20220512
  Transmission Date: 20220721
  Serious: Yes (Disabling)
  Sender: FDA-Public Use
  Company Number: None

PATIENT
  Age: 24 Year
  Sex: Female
  Weight: 73 kg

DRUGS (7)
  1. DEPO-PROVERA [Suspect]
     Active Substance: MEDROXYPROGESTERONE ACETATE
     Indication: Contraception
     Dosage: UNK
     Dates: start: 20200526, end: 20200828
  2. NAPROXEN [Concomitant]
     Active Substance: NAPROXEN
     Dosage: UNK
     Dates: start: 20200101
  3. MAGNESIUM [Concomitant]
     Active Substance: MAGNESIUM
     Dosage: UNK
  4. VITAMIN C [Concomitant]
     Active Substance: ASCORBIC ACID
  5. SELEN [SELENIUM] [Concomitant]
     Dosage: UNK
  6. VITAMIN E [Concomitant]
     Active Substance: .ALPHA.-TOCOPHEROL
     Dosage: UNK
  7. VITAMIN B [Concomitant]
     Active Substance: VITAMIN B
     Dosage: UNK

REACTIONS (17)
  - Libido decreased [Recovering/Resolving]
  - Back pain [Recovering/Resolving]
  - Migraine [Recovering/Resolving]
  - Abdominal pain [Recovering/Resolving]
  - Premenstrual dysphoric disorder [Recovering/Resolving]
  - Nausea [Recovering/Resolving]
  - Vaginal haemorrhage [Recovering/Resolving]
  - Vulvovaginal dryness [Unknown]
  - Mood swings [Recovering/Resolving]
  - Premenstrual syndrome [Recovering/Resolving]
  - Mucosal dryness [Unknown]
  - Vestibulitis [Recovering/Resolving]
  - Hirsutism [Recovering/Resolving]
  - Personality change [Recovering/Resolving]
  - Acne [Not Recovered/Not Resolved]
  - Headache [Recovering/Resolving]
  - Disease recurrence [Recovering/Resolving]

NARRATIVE: CASE EVENT DATE: 20200101
